FAERS Safety Report 4883360-7 (Version None)
Quarter: 2006Q1

REPORT INFORMATION
  Report Type: 
  Country: None (occurrence: None)
  Receive Date: 20060113
  Receipt Date: 20060103
  Transmission Date: 20060701
  Serious: Yes (Hospitalization)
  Sender: FDA-Public Use
  Company Number: 2005-02096

PATIENT
  Age: 54 Year
  Sex: Female

DRUGS (16)
  1. VELCADE [Suspect]
     Indication: MULTIPLE MYELOMA
     Dosage: 2.70 MG, INTRAVENOUS
     Route: 042
     Dates: start: 20050513, end: 20050930
  2. DEXAMETHASONE [Suspect]
     Dates: end: 20051001
  3. FLUCLOXACILLIN (FLUCLOXACILLIN) [Concomitant]
  4. VENTOLIN (SALBUTAMOL) INHALER [Concomitant]
  5. AUGMENTIN DUO FORTE (CLAVULANATE POTASSIUM, AMOXICILLIN TRIHYDRATE) [Concomitant]
  6. CEFTRIAXONE [Concomitant]
  7. PANADEINE FORTE (CODEINE PHOSPHATE, PARACETAMOL) [Concomitant]
  8. AZITHROMYCIN [Concomitant]
  9. MAXOLON [Concomitant]
  10. TROPISETRON (TROPISETRON) [Concomitant]
  11. PROCHLORPERAZINE [Concomitant]
  12. TETRACYCLINE [Concomitant]
  13. PREDNISOLONE [Concomitant]
  14. MERREM [Concomitant]
  15. ACTRAPID HUMAN (INSULIN HUMAN) [Concomitant]
  16. ATROVENT (IPRATROPIUM BROMIDE) INHALER [Concomitant]

REACTIONS (8)
  - CHRONIC OBSTRUCTIVE PULMONARY DISEASE [None]
  - CONDITION AGGRAVATED [None]
  - HEART RATE INCREASED [None]
  - IMMUNOSUPPRESSION [None]
  - LOWER RESPIRATORY TRACT INFECTION [None]
  - PARAINFLUENZAE VIRUS INFECTION [None]
  - SPUTUM CULTURE POSITIVE [None]
  - STENOTROPHOMONAS INFECTION [None]
